FAERS Safety Report 4788247-6 (Version None)
Quarter: 2005Q4

REPORT INFORMATION
  Report Type: 
  Country: None (occurrence: None)
  Receive Date: 20051003
  Receipt Date: 20050919
  Transmission Date: 20060501
  Serious: Yes (Life-Threatening, Hospitalization)
  Sender: FDA-Public Use
  Company Number: ERD2002A00125

PATIENT
  Age: 75 Year
  Sex: Female

DRUGS (7)
  1. PIOGLITAZONE HCL [Suspect]
     Indication: DIABETES MELLITUS NON-INSULIN-DEPENDENT
     Dosage: 45 MG ORAL
     Route: 048
     Dates: start: 20020226, end: 20020719
  2. BISOPROLOL FUMARATE [Concomitant]
  3. PRESTARIUM (PERINDOPRIL) [Concomitant]
  4. EFFOX LONG (ISOSORBIDE MONONITRATE) [Concomitant]
  5. SPIRONOLACTONE [Concomitant]
  6. ZOCOR [Concomitant]
  7. ACARD (ACETYLSALICYLIC ACID) [Concomitant]

REACTIONS (3)
  - ACUTE PULMONARY OEDEMA [None]
  - FACE OEDEMA [None]
  - OEDEMA PERIPHERAL [None]
